FAERS Safety Report 4843854-7 (Version None)
Quarter: 2005Q4

REPORT INFORMATION
  Report Type: 
  Country: None (occurrence: None)
  Receive Date: 20051129
  Receipt Date: 20051115
  Transmission Date: 20060501
  Serious: Yes (Other)
  Sender: FDA-Public Use
  Company Number: GXKR2005CA01793

PATIENT
  Age: 75 Year
  Sex: Female

DRUGS (3)
  1. CYANOCOBALAMIN [Suspect]
     Dosage: 1000 MCG, ONCE A MONTH, INTRAMUSCULAR
     Route: 030
     Dates: start: 20050824, end: 20050824
  2. SYNTHROID [Concomitant]
  3. ALTACE [Concomitant]

REACTIONS (5)
  - ANGINA PECTORIS [None]
  - BACK PAIN [None]
  - DIFFICULTY IN WALKING [None]
  - MASS [None]
  - MYOCARDIAL INFARCTION [None]
